FAERS Safety Report 8854206 (Version 1)
Quarter: 2012Q4

REPORT INFORMATION
  Report Type: Spontaneous
  Country: US (occurrence: None)
  Receive Date: 20121019
  Receipt Date: 20121019
  Transmission Date: 20130627
  Serious: Yes (Other)
  Sender: FDA-Public Use
  Company Number: None

PATIENT
  Age: 8 Year
  Sex: Male
  Weight: 29.48 kg

DRUGS (2)
  1. INTUNIV [Suspect]
  2. INTUNIV [Suspect]

REACTIONS (2)
  - Medication error [None]
  - Circumstance or information capable of leading to medication error [None]
